FAERS Safety Report 18046142 (Version 2)
Quarter: 2020Q3

REPORT INFORMATION
  Report Type: Spontaneous
  Country: US (occurrence: US)
  Receive Date: 20200720
  Receipt Date: 20200731
  Transmission Date: 20201103
  Serious: Yes (Other)
  Sender: FDA-Public Use
  Company Number: US-009507513-2007USA006474

PATIENT
  Age: 24 Year
  Sex: Female
  Weight: 55.78 kg

DRUGS (1)
  1. NEXPLANON [Suspect]
     Active Substance: ETONOGESTREL
     Indication: CONTRACEPTION
     Dosage: 1 IMPLANT, EVERY 3 YEARS
     Dates: start: 201706

REACTIONS (5)
  - Device deployment issue [Not Recovered/Not Resolved]
  - Incorrect product administration duration [Unknown]
  - Complication of device removal [Not Recovered/Not Resolved]
  - Device dislocation [Not Recovered/Not Resolved]
  - Device issue [Not Recovered/Not Resolved]

NARRATIVE: CASE EVENT DATE: 201706
